FAERS Safety Report 14438204 (Version 1)
Quarter: 2018Q1

REPORT INFORMATION
  Report Type: Spontaneous
  Country: US (occurrence: US)
  Receive Date: 20180125
  Receipt Date: 20180125
  Transmission Date: 20180509
  Serious: No
  Sender: FDA-Public Use
  Company Number: US-PFIZER INC-2018030563

PATIENT
  Age: 79 Year
  Sex: Male
  Weight: 73.48 kg

DRUGS (3)
  1. XELJANZ XR [Suspect]
     Active Substance: TOFACITINIB CITRATE
     Indication: RHEUMATOID ARTHRITIS
     Dosage: 11MG ONCE A DAY BY MOUTH
     Route: 048
     Dates: start: 2016, end: 201712
  2. METHOTREXATE. [Concomitant]
     Active Substance: METHOTREXATE
     Indication: RHEUMATOID ARTHRITIS
     Dosage: 4 TABLETS ONCE A WEEK
     Dates: end: 201712
  3. PREDNISONE. [Concomitant]
     Active Substance: PREDNISONE
     Dosage: 5MG

REACTIONS (3)
  - Immune system disorder [Unknown]
  - Drug ineffective [Unknown]
  - Viral infection [Recovering/Resolving]

NARRATIVE: CASE EVENT DATE: 2017
